FAERS Safety Report 19004114 (Version 1)
Quarter: 2021Q1

REPORT INFORMATION
  Report Type: Spontaneous
  Country: US (occurrence: US)
  Receive Date: 20210312
  Receipt Date: 20210312
  Transmission Date: 20210420
  Serious: No
  Sender: FDA-Public Use
  Company Number: US-BIOVITRUM-2021US2510

PATIENT
  Sex: Male
  Weight: 4.9 kg

DRUGS (3)
  1. SYNAGIS [Suspect]
     Active Substance: PALIVIZUMAB
     Indication: PERSISTENT FOETAL CIRCULATION
  2. POLY?VI?SOL WITH IRON [Concomitant]
     Active Substance: IRON\VITAMINS
  3. SYNAGIS [Suspect]
     Active Substance: PALIVIZUMAB
     Indication: PREMATURE BABY
     Route: 030
     Dates: start: 20210108

REACTIONS (2)
  - Infant irritability [Unknown]
  - Crying [Unknown]
